FAERS Safety Report 4334051-2 (Version None)
Quarter: 2004Q2

REPORT INFORMATION
  Report Type: 
  Country: None (occurrence: None)
  Receive Date: 20040402
  Receipt Date: 20040318
  Transmission Date: 20050107
  Serious: Yes (Other)
  Sender: FDA-Public Use
  Company Number: PHNU2004DE01208

PATIENT
  Age: 80 Year
  Sex: Female

DRUGS (1)
  1. VISUDYNE [Suspect]
     Indication: MACULAR DEGENERATION
     Dates: start: 20031208, end: 20031208

REACTIONS (4)
  - REFUSAL OF TREATMENT BY PATIENT [None]
  - RETINAL HAEMORRHAGE [None]
  - RETINAL OEDEMA [None]
  - VISUAL ACUITY REDUCED [None]
